FAERS Safety Report 9384177 (Version 1)
Quarter: 2013Q3

REPORT INFORMATION
  Report Type: Spontaneous
  Country: US (occurrence: None)
  Receive Date: 20130702
  Receipt Date: 20130702
  Transmission Date: 20140515
  Serious: Yes (Hospitalization)
  Sender: FDA-Public Use
  Company Number: None

PATIENT
  Sex: 0

DRUGS (1)
  1. BUDESONIDE [Suspect]
     Route: 048
     Dates: start: 20130530, end: 20130628

REACTIONS (3)
  - Dehydration [None]
  - Diarrhoea [None]
  - Product quality issue [None]
